FAERS Safety Report 6088948-6 (Version None)
Quarter: 2009Q1

REPORT INFORMATION
  Report Type: 
  Country: None (occurrence: None)
  Receive Date: 20090224
  Receipt Date: 20090123
  Transmission Date: 20090719
  Serious: No
  Sender: FDA-Public Use
  Company Number: US-BAYER-200910226BCC

PATIENT
  Age: 43 Year
  Sex: Female
  Weight: 64 kg

DRUGS (7)
  1. ALEVE (CAPLET) [Suspect]
     Indication: PAIN
  2. ONE A DAY WOMEN'S [Suspect]
     Indication: DRUG USE FOR UNKNOWN INDICATION
  3. NASONEX [Concomitant]
  4. PRILOSEC [Concomitant]
  5. NEXIUM [Concomitant]
  6. TYLENOL [Concomitant]
  7. CENTRUM SILVER [Concomitant]

REACTIONS (2)
  - ABDOMINAL DISCOMFORT [None]
  - ABDOMINAL PAIN UPPER [None]
